FAERS Safety Report 7614270 (Version 2)
Quarter: 2014Q1

REPORT INFORMATION
  Report Type: Spontaneous
  Country: FR (occurrence: FR)
  Receive Date: 20101001
  Receipt Date: 20140107
  Transmission Date: 20141002
  Serious: Yes (Hospitalization)
  Sender: FDA-Public Use
  Company Number: FR-PFIZER INC-2010120493

PATIENT
  Age: 75 Year
  Sex: Female

DRUGS (12)
  1. ORELOX [Suspect]
     Indication: SEPSIS
     Dosage: 100 MG, 2X/DAY
     Route: 048
     Dates: start: 20100728, end: 20100804
  2. PYOSTACINE [Suspect]
     Indication: SEPSIS
     Dosage: 500 MG, 3X/DAY
     Route: 048
     Dates: start: 20100726, end: 20100804
  3. ZYLORIC [Suspect]
     Dosage: 300 MG, DAILY
     Route: 048
     Dates: start: 20100630, end: 20100804
  4. ESIDREX [Suspect]
     Indication: SEPSIS
     Dosage: 25 MG, DAILY
     Route: 048
     Dates: start: 20100726, end: 20100804
  5. NOCTRAN [Suspect]
     Indication: SEPSIS
     Dosage: 10 MG, DAILY
     Route: 048
     Dates: start: 20100730, end: 20100807
  6. PRAVASTATIN [Concomitant]
     Dosage: UNK
  7. KENZEN [Concomitant]
     Dosage: UNK
  8. LASILIX [Concomitant]
     Dosage: UNK
  9. TEMESTA [Concomitant]
     Dosage: UNK
  10. CARDENSIEL [Concomitant]
     Dosage: UNK
  11. ASPEGIC [Concomitant]
     Dosage: UNK
  12. VANCOMYCINE [Concomitant]
     Dosage: UNK
     Dates: start: 20100715, end: 20100726

REACTIONS (3)
  - Toxic skin eruption [Not Recovered/Not Resolved]
  - Eosinophilia [Not Recovered/Not Resolved]
  - Rash morbilliform [Not Recovered/Not Resolved]
